FAERS Safety Report 19790518 (Version 1)
Quarter: 2021Q3

REPORT INFORMATION
  Report Type: Spontaneous
  Country: US (occurrence: US)
  Receive Date: 20210906
  Receipt Date: 20210906
  Transmission Date: 20211014
  Serious: No
  Sender: FDA-Public Use
  Company Number: US-SABAL THERAPEUTICS LLC-2021-ATH-000005

PATIENT
  Age: 57 Year
  Sex: Female

DRUGS (1)
  1. QDOLO [Suspect]
     Active Substance: TRAMADOL HYDROCHLORIDE
     Indication: PAIN

REACTIONS (1)
  - Therapeutic product effect incomplete [Unknown]
